FAERS Safety Report 8816711 (Version 1)
Quarter: 2012Q4

REPORT INFORMATION
  Report Type: Spontaneous
  Country: US (occurrence: None)
  Receive Date: 20120830
  Receipt Date: 20120830
  Transmission Date: 20130627
  Serious: Yes (Other)
  Sender: FDA-Public Use
  Company Number: 2012P1054762

PATIENT

DRUGS (1)
  1. PANTOPRAZOLE SODIUM DELAYED RELEASE [Suspect]
     Route: 048

REACTIONS (6)
  - Abdominal pain upper [None]
  - Drug ineffective [None]
  - Gastric ulcer [None]
  - Gastric haemorrhage [None]
  - Product counterfeit [None]
  - Condition aggravated [None]
